FAERS Safety Report 12570215 (Version 2)
Quarter: 2016Q3

REPORT INFORMATION
  Report Type: Spontaneous
  Country: US (occurrence: US)
  Receive Date: 20160719
  Receipt Date: 20160727
  Transmission Date: 20161109
  Serious: Yes (Hospitalization, Other)
  Sender: FDA-Public Use
  Company Number: US-MALLINCKRODT-T201602984

PATIENT
  Sex: Male
  Weight: 95 kg

DRUGS (10)
  1. BUMEX [Concomitant]
     Active Substance: BUMETANIDE
  2. MINOXIDIL. [Concomitant]
     Active Substance: MINOXIDIL
  3. CLONIDINE. [Concomitant]
     Active Substance: CLONIDINE
     Dosage: PATCH
  4. NORVASC [Concomitant]
     Active Substance: AMLODIPINE BESYLATE
  5. NORCO [Concomitant]
     Active Substance: ACETAMINOPHEN\HYDROCODONE BITARTRATE
  6. LOSARTAN. [Concomitant]
     Active Substance: LOSARTAN
  7. DOXAZOSIN [Concomitant]
     Active Substance: DOXAZOSIN\DOXAZOSIN MESYLATE
  8. H.P. ACTHAR [Suspect]
     Active Substance: CORTICOTROPIN
     Indication: FOCAL SEGMENTAL GLOMERULOSCLEROSIS
     Dosage: 80 UNITS TWICE WKLY
     Route: 058
     Dates: start: 201605, end: 20160704
  9. SIMVASTATIN. [Concomitant]
     Active Substance: SIMVASTATIN
  10. LABETALOL [Concomitant]
     Active Substance: LABETALOL\LABETALOL HYDROCHLORIDE

REACTIONS (3)
  - Seizure [Unknown]
  - Acute kidney injury [Unknown]
  - Septic shock [Unknown]

NARRATIVE: CASE EVENT DATE: 2016
